FAERS Safety Report 15205788 (Version 1)
Quarter: 2018Q4

REPORT INFORMATION
  Report Type: Spontaneous
  Country: ES (occurrence: ES)
  Receive Date: 20180727
  Receipt Date: 20180727
  Transmission Date: 20190204
  Serious: Yes (Hospitalization)
  Sender: FDA-Public Use
  Company Number: ES-SUN PHARMACEUTICAL INDUSTRIES LTD-2018RR-179621

PATIENT
  Age: 28 Year
  Sex: Male
  Weight: 83 kg

DRUGS (5)
  1. QUETIAPINA (1136A) [Suspect]
     Active Substance: QUETIAPINE
     Indication: DRUG ABUSER
     Dosage: 150 MG, DAILY
     Route: 048
     Dates: start: 20171025, end: 20180105
  2. ELVANSE 30 MG CAPSULAS DURAS , 30 CAPSULAS [Suspect]
     Active Substance: LISDEXAMFETAMINE DIMESYLATE
     Indication: ATTENTION DEFICIT/HYPERACTIVITY DISORDER
     Dosage: 30 MG, DAILY
     Route: 048
     Dates: start: 20171123, end: 20180105
  3. ANTABUS 250 MG COMPRIMIDOS , 40 COMPRIMIDOS [Suspect]
     Active Substance: DISULFIRAM
     Indication: DRUG ABUSER
     Dosage: 250 MG, DAILY
     Route: 048
     Dates: start: 20171026, end: 20180105
  4. GABAPENTIN. [Suspect]
     Active Substance: GABAPENTIN
     Indication: DRUG ABUSER
     Dosage: 300 MG, TID
     Route: 048
     Dates: start: 20170922, end: 20180105
  5. HIDROXIL B1-B6-B12 COMPRIMIDOS RECUBIERTOS CON PELICULA , 30 COMPRI [Concomitant]
     Indication: DRUG ABUSER
     Dosage: ()
     Route: 048
     Dates: start: 20170922, end: 20180105

REACTIONS (2)
  - Hepatitis [Recovering/Resolving]
  - Hyperbilirubinaemia [Unknown]

NARRATIVE: CASE EVENT DATE: 20180106
